FAERS Safety Report 17462964 (Version 1)
Quarter: 2020Q1

REPORT INFORMATION
  Report Type: Spontaneous
  Country: FR (occurrence: FR)
  Receive Date: 20200226
  Receipt Date: 20200226
  Transmission Date: 20200409
  Serious: Yes (Disabling)
  Sender: FDA-Public Use
  Company Number: FR-ALLERGAN-2008277US

PATIENT
  Sex: Female

DRUGS (6)
  1. ESCITALOPRAM OXALATE - BP [Suspect]
     Active Substance: ESCITALOPRAM OXALATE
     Indication: EXPOSURE DURING PREGNANCY
     Dosage: 10 MG, QD
     Route: 064
     Dates: start: 20131016, end: 20140717
  2. ALPRAZOLAM. [Suspect]
     Active Substance: ALPRAZOLAM
     Indication: DEPRESSION
  3. ALPRAZOLAM. [Suspect]
     Active Substance: ALPRAZOLAM
     Indication: EXPOSURE DURING PREGNANCY
     Dosage: 1 MG, QD
     Route: 064
     Dates: start: 20131016, end: 20140717
  4. ESCITALOPRAM OXALATE - BP [Suspect]
     Active Substance: ESCITALOPRAM OXALATE
     Indication: DEPRESSION
  5. ZOPICLONE [Suspect]
     Active Substance: ZOPICLONE
     Indication: EXPOSURE DURING PREGNANCY
     Dosage: 7.5 MG, QD
     Route: 064
     Dates: start: 20131016, end: 20140717
  6. ZOPICLONE [Suspect]
     Active Substance: ZOPICLONE
     Indication: DEPRESSION

REACTIONS (3)
  - Learning disorder [Not Recovered/Not Resolved]
  - Pregnancy [Unknown]
  - Behaviour disorder [Not Recovered/Not Resolved]

NARRATIVE: CASE EVENT DATE: 20190917
